FAERS Safety Report 7217602-X (Version None)
Quarter: 2011Q1

REPORT INFORMATION
  Report Type: 
  Country: None (occurrence: None)
  Receive Date: 20110110
  Receipt Date: 20110103
  Transmission Date: 20110831
  Serious: Yes (Other)
  Sender: FDA-Public Use
  Company Number: US-PFIZER INC-2011002881

PATIENT
  Age: 21 Year
  Sex: Male
  Weight: 68 kg

DRUGS (2)
  1. ACETAMINOPHEN [Suspect]
     Dosage: UNK
  2. ROBITUSSIN COUGH AND CHEST CONGESTION DM [Suspect]
     Dosage: 8OZ AT ONCE
     Route: 048

REACTIONS (3)
  - RENAL FAILURE [None]
  - OVERDOSE [None]
  - CHROMATURIA [None]
